FAERS Safety Report 13644996 (Version 1)
Quarter: 2017Q2

REPORT INFORMATION
  Report Type: Spontaneous
  Country: US (occurrence: US)
  Receive Date: 20170612
  Receipt Date: 20170612
  Transmission Date: 20170830
  Serious: No
  Sender: FDA-Public Use
  Company Number: US-ROCHE-1363623

PATIENT
  Sex: Male

DRUGS (4)
  1. 5-FU IV [Concomitant]
     Active Substance: FLUOROURACIL
  2. PERCOCET [Concomitant]
     Active Substance: ACETAMINOPHEN\OXYCODONE HYDROCHLORIDE
  3. BENADRYL [Concomitant]
     Active Substance: DIPHENHYDRAMINE HYDROCHLORIDE
  4. XELODA [Suspect]
     Active Substance: CAPECITABINE
     Indication: RECTAL CANCER
     Route: 048
     Dates: start: 20140124

REACTIONS (2)
  - Diarrhoea [Not Recovered/Not Resolved]
  - Neuropathy peripheral [Recovering/Resolving]
